FAERS Safety Report 26052817 (Version 3)
Quarter: 2025Q4

REPORT INFORMATION
  Report Type: Report from Study
  Country: CA (occurrence: CA)
  Receive Date: 20251117
  Receipt Date: 20251230
  Transmission Date: 20260118
  Serious: Yes (Other)
  Sender: ROCHE
  Company Number: CA-ROCHE-10000432730

PATIENT
  Age: 59 Year
  Sex: Male

DRUGS (1)
  1. VABYSMO [Suspect]
     Active Substance: FARICIMAB-SVOA
     Indication: Retinal vein occlusion

REACTIONS (2)
  - Cerebrovascular accident [Recovering/Resolving]
  - Vasculitis [Unknown]

NARRATIVE: CASE EVENT DATE: 20251001
